FAERS Safety Report 7974056-3 (Version None)
Quarter: 2011Q4

REPORT INFORMATION
  Report Type: 
  Country: None (occurrence: None)
  Receive Date: 20111213
  Receipt Date: 20111213
  Transmission Date: 20120403
  Serious: Yes (Hospitalization)
  Sender: FDA-Public Use
  Company Number: US-GLAXOSMITHKLINE-B0768623A

PATIENT
  Age: 75 Year
  Sex: Male

DRUGS (1)
  1. AVANDAMET [Suspect]
     Indication: DIABETES MELLITUS
     Route: 048
     Dates: start: 20061001, end: 20101201

REACTIONS (5)
  - CEREBROVASCULAR ACCIDENT [None]
  - THROMBOSIS [None]
  - DIZZINESS [None]
  - HEADACHE [None]
  - MUSCULAR WEAKNESS [None]
